FAERS Safety Report 14683203 (Version 1)
Quarter: 2018Q1

REPORT INFORMATION
  Report Type: Spontaneous
  Country: US (occurrence: US)
  Receive Date: 20180326
  Receipt Date: 20180326
  Transmission Date: 20180509
  Serious: Yes (Other)
  Sender: FDA-Public Use
  Company Number: None

PATIENT
  Age: 39 Year
  Sex: Male
  Weight: 92.99 kg

DRUGS (2)
  1. BUPRENORPHINE/NALOXONE 8/2 [Suspect]
     Active Substance: BUPRENORPHINE\NALOXONE
     Indication: DRUG DEPENDENCE
     Dosage: 8/2 MG TABS ONCE TID SUBLINGUAL
     Route: 060
     Dates: start: 20180125
  2. BUPRENORPHINE/NALOXONE 8/2 [Suspect]
     Active Substance: BUPRENORPHINE\NALOXONE
     Indication: DRUG THERAPY
     Dosage: 8/2 MG TABS ONCE TID SUBLINGUAL
     Route: 060
     Dates: start: 20180125

REACTIONS (5)
  - Withdrawal syndrome [None]
  - Night sweats [None]
  - Anxiety [None]
  - Fear [None]
  - Drug level decreased [None]

NARRATIVE: CASE EVENT DATE: 20180214
